FAERS Safety Report 7321508 (Version 3)
Quarter: 2013Q1

REPORT INFORMATION
  Report Type: Spontaneous
  Country: None (occurrence: None)
  Receive Date: 20100219
  Receipt Date: 20121016
  Transmission Date: 20140127
  Serious: Yes (Other)
  Sender: FDA-Public Use
  Company Number: AUR-APL-2010-00361

PATIENT
  Age: 63 Year
  Sex: Male
  Weight: 68.7 kg

DRUGS (10)
  1. TERBINAFINE(TERBINAFINE) [Suspect]
     Indication: ONYCHOMYCOSIS
     Dosage: 250MG, UNK, ORAL
     Route: 048
     Dates: start: 20090624, end: 20091125
  2. AMLODIPINE (AMLODIPINE) (AMLODIPINE) [Concomitant]
  3. ATORVASTATIN(ATORVASTATIN) [Concomitant]
  4. BECLOMETASONE(BECLOMETASONE) [Concomitant]
  5. BENDROFLUAZIDE(BENDROFLUMETHIAZIDE) [Concomitant]
  6. DOXAZOSIN MESILATE(DOXAZOSIN MESILATE) [Concomitant]
  7. EXENATIDE(EXENATIDE) [Concomitant]
  8. METFORMIN(METFORMIN) [Concomitant]
  9. RAMIPRIL (RAMIPRIL) [Concomitant]
  10. SODIUM CROMOGLICATE(CROMOGLICATE SODIUM) [Concomitant]

REACTIONS (2)
  - Renal impairment [None]
  - Glomerular filtration rate decreased [None]
